FAERS Safety Report 21328857 (Version 3)
Quarter: 2024Q1

REPORT INFORMATION
  Report Type: Spontaneous
  Country: US (occurrence: US)
  Receive Date: 20220913
  Receipt Date: 20240202
  Transmission Date: 20240409
  Serious: Yes (Other)
  Sender: FDA-Public Use
  Company Number: US-PFIZER INC-202201147438

PATIENT
  Age: 64 Year
  Sex: Female
  Weight: 56.7 kg

DRUGS (2)
  1. IBRANCE [Suspect]
     Active Substance: PALBOCICLIB
     Indication: Breast cancer metastatic
     Dosage: (TAKES FOR 21 DAYS AND OFF 7 DAYS )
  2. LETROZOLE [Suspect]
     Active Substance: LETROZOLE
     Indication: Hormone suppression therapy
     Dosage: UNK

REACTIONS (5)
  - Hysterectomy [Unknown]
  - Fatigue [Unknown]
  - Weight decreased [Unknown]
  - Immune system disorder [Unknown]
  - White blood cell count abnormal [Unknown]
